FAERS Safety Report 8384409-X (Version None)
Quarter: 2012Q2

REPORT INFORMATION
  Report Type: 
  Country: None (occurrence: None)
  Receive Date: 20120524
  Receipt Date: 20120514
  Transmission Date: 20120825
  Serious: Yes (Other)
  Sender: FDA-Public Use
  Company Number: US-GLAXOSMITHKLINE-A0933634A

PATIENT
  Age: 55 Year
  Sex: Male
  Weight: 104.5 kg

DRUGS (4)
  1. LANTUS [Concomitant]
  2. GLUCOPHAGE [Concomitant]
  3. AVANDIA [Suspect]
     Indication: DIABETES MELLITUS
     Dosage: 4MG TWICE PER DAY
     Route: 048
     Dates: start: 20040729, end: 20041201
  4. AMARYL [Concomitant]

REACTIONS (1)
  - BRAIN STEM STROKE [None]
